FAERS Safety Report 5578732-1 (Version None)
Quarter: 2007Q4

REPORT INFORMATION
  Report Type: 
  Country: None (occurrence: None)
  Receive Date: 20071227
  Receipt Date: 20071217
  Transmission Date: 20080405
  Serious: Yes (Other)
  Sender: FDA-Public Use
  Company Number: CHPA2007US13775

PATIENT
  Sex: Female

DRUGS (1)
  1. EX-LAX UNKNOWN (NCH)(UNKNOWN) UNKNOWN [Suspect]
     Dosage: ORAL
     Route: 048

REACTIONS (1)
  - HAEMATOCHEZIA [None]
